FAERS Safety Report 7645036-2 (Version None)
Quarter: 2011Q3

REPORT INFORMATION
  Report Type: 
  Country: None (occurrence: None)
  Receive Date: 20110729
  Receipt Date: 20110722
  Transmission Date: 20111222
  Serious: Yes (Death, Hospitalization)
  Sender: FDA-Public Use
  Company Number: GR-GLAXOSMITHKLINE-B0734712A

PATIENT
  Sex: Male

DRUGS (5)
  1. IRBESARTAN [Concomitant]
     Indication: HYPERTENSION
  2. GLUCOPHAGE [Concomitant]
     Indication: TYPE 2 DIABETES MELLITUS
  3. VOTRIENT [Suspect]
     Indication: RENAL CELL CARCINOMA
     Dosage: 800MG PER DAY
     Route: 065
     Dates: start: 20110610, end: 20110710
  4. GLIMEPIRIDE [Concomitant]
     Indication: TYPE 2 DIABETES MELLITUS
  5. SALOSPIR [Concomitant]
     Indication: HYPERTENSION

REACTIONS (9)
  - MENTAL IMPAIRMENT [None]
  - BLOOD LACTATE DEHYDROGENASE INCREASED [None]
  - COMA [None]
  - CARDIAC FAILURE [None]
  - FATIGUE [None]
  - MULTI-ORGAN FAILURE [None]
  - ASPARTATE AMINOTRANSFERASE INCREASED [None]
  - ALANINE AMINOTRANSFERASE INCREASED [None]
  - ISCHAEMIC HEPATITIS [None]
